FAERS Safety Report 16665384 (Version 3)
Quarter: 2020Q3

REPORT INFORMATION
  Report Type: Spontaneous
  Country: US (occurrence: US)
  Receive Date: 20190803
  Receipt Date: 20200820
  Transmission Date: 20201102
  Serious: Yes (Other)
  Sender: FDA-Public Use
  Company Number: US-GILEAD-2019-0421687

PATIENT
  Age: 42 Year
  Sex: Female

DRUGS (17)
  1. METFORMIN [Concomitant]
     Active Substance: METFORMIN HYDROCHLORIDE
  2. BACTRIM DS [Concomitant]
     Active Substance: SULFAMETHOXAZOLE\TRIMETHOPRIM
  3. FUROSEMIDE. [Concomitant]
     Active Substance: FUROSEMIDE
  4. BIKTARVY [Concomitant]
     Active Substance: BICTEGRAVIR SODIUM\EMTRICITABINE\TENOFOVIR ALAFENAMIDE FUMARATE
     Indication: HIV INFECTION
     Dosage: 1 DOSAGE FORM (50?200?25 MG), QD
     Route: 048
     Dates: start: 201807
  5. LORATADINE. [Concomitant]
     Active Substance: LORATADINE
  6. RANITIDINE. [Concomitant]
     Active Substance: RANITIDINE
  7. SPIRONOLACTONE. [Concomitant]
     Active Substance: SPIRONOLACTONE
  8. ATRIPLA [Suspect]
     Active Substance: EFAVIRENZ\EMTRICITABINE\TENOFOVIR DISOPROXIL FUMARATE
     Indication: HIV INFECTION
     Dosage: 1 DOSAGE FORM (600?200?300 MG), QD
     Route: 048
     Dates: start: 201406, end: 201503
  9. AMLODIPINE [Concomitant]
     Active Substance: AMLODIPINE BESYLATE
  10. LISINOPRIL. [Concomitant]
     Active Substance: LISINOPRIL
  11. OMEPRAZOLE. [Concomitant]
     Active Substance: OMEPRAZOLE
  12. STRIBILD [Suspect]
     Active Substance: COBICISTAT\ELVITEGRAVIR\EMTRICITABINE\TENOFOVIR DISOPROXIL FUMARATE
     Indication: HIV INFECTION
     Dosage: 1 DOSAGE FORM (150?150?200?300 MG), QD
     Route: 048
     Dates: start: 201503, end: 201807
  13. ZYRTEC [Concomitant]
     Active Substance: CETIRIZINE HYDROCHLORIDE
  14. LIDOCAINE. [Concomitant]
     Active Substance: LIDOCAINE
  15. CARVEDILOL. [Concomitant]
     Active Substance: CARVEDILOL
  16. FLONASE [Concomitant]
     Active Substance: FLUTICASONE PROPIONATE
  17. HYDROCHLOROTHIAZIDE. [Concomitant]
     Active Substance: HYDROCHLOROTHIAZIDE

REACTIONS (13)
  - Suicide attempt [Recovered/Resolved]
  - Nausea [Unknown]
  - Economic problem [Unknown]
  - Anxiety [Unknown]
  - Poor quality sleep [Unknown]
  - Osteoporosis [Unknown]
  - Anhedonia [Unknown]
  - Depression [Not Recovered/Not Resolved]
  - Bone density decreased [Not Recovered/Not Resolved]
  - Emotional distress [Unknown]
  - Pain [Unknown]
  - Abnormal dreams [Unknown]
  - Bone loss [Unknown]

NARRATIVE: CASE EVENT DATE: 201501
